FAERS Safety Report 11128411 (Version 1)
Quarter: 2015Q2

REPORT INFORMATION
  Report Type: Spontaneous
  Country: US (occurrence: None)
  Receive Date: 20150520
  Receipt Date: 20150520
  Transmission Date: 20150821
  Serious: Yes (Other)
  Sender: FDA-Public Use
  Company Number: None

PATIENT
  Age: 41 Year
  Sex: Female
  Weight: 67.59 kg

DRUGS (4)
  1. NECON [Concomitant]
     Active Substance: ETHINYL ESTRADIOL\NORETHINDRONE
  2. VIIBRYD [Suspect]
     Active Substance: VILAZODONE HYDROCHLORIDE
     Indication: ANXIETY
     Dosage: 40 MG 1 TAB QD ORAL
     Route: 048
     Dates: start: 20150227, end: 20150316
  3. LAMOTRIGINE. [Concomitant]
     Active Substance: LAMOTRIGINE
  4. VIIBRYD [Suspect]
     Active Substance: VILAZODONE HYDROCHLORIDE
     Indication: DEPRESSION
     Dosage: 40 MG 1 TAB QD ORAL
     Route: 048
     Dates: start: 20150227, end: 20150316

REACTIONS (1)
  - Petit mal epilepsy [None]

NARRATIVE: CASE EVENT DATE: 20150317
